FAERS Safety Report 10900527 (Version 1)
Quarter: 2015Q1

REPORT INFORMATION
  Report Type: Spontaneous
  Country: US (occurrence: None)
  Receive Date: 20150303
  Receipt Date: 20150303
  Transmission Date: 20150721
  Serious: Yes (Hospitalization)
  Sender: FDA-Public Use
  Company Number: None

PATIENT
  Age: 2 Year
  Sex: Female
  Weight: 16.4 kg

DRUGS (1)
  1. CASPOFUNGIN [Suspect]
     Active Substance: CASPOFUNGIN
     Dates: end: 20150120

REACTIONS (4)
  - Lung infection [None]
  - Pyrexia [None]
  - Neutrophil count decreased [None]
  - Clostridium difficile infection [None]

NARRATIVE: CASE EVENT DATE: 20150104
